FAERS Safety Report 12712504 (Version 3)
Quarter: 2016Q4

REPORT INFORMATION
  Report Type: Spontaneous
  Country: US (occurrence: US)
  Receive Date: 20160902
  Receipt Date: 20161005
  Transmission Date: 20170207
  Serious: No
  Sender: FDA-Public Use
  Company Number: US-PFIZER INC-2016407130

PATIENT

DRUGS (3)
  1. VASOPRESSIN. [Concomitant]
     Active Substance: VASOPRESSIN
  2. 0.9% NORMAL SALINE [Suspect]
     Active Substance: SODIUM CHLORIDE
     Dosage: 250 ML, UNK
  3. LEVOPHED [Suspect]
     Active Substance: NOREPINEPHRINE BITARTRATE
     Dosage: 4MG/4ML VIAL, 8 VIALS TO MAKE 32MG OF LEVOPHED IN 250 ML OF 0.9% NORMAL SALINE

REACTIONS (3)
  - Blood pressure decreased [Recovered/Resolved]
  - Product preparation error [Unknown]
  - Drug ineffective [Unknown]
